FAERS Safety Report 23325872 (Version 2)
Quarter: 2025Q1

REPORT INFORMATION
  Report Type: Report from Study
  Country: US (occurrence: US)
  Receive Date: 20231221
  Receipt Date: 20250218
  Transmission Date: 20250409
  Serious: Yes (Other)
  Sender: TAKEDA
  Company Number: US-TAKEDA-2022TUS049659

PATIENT
  Age: 47 Year
  Sex: Female
  Weight: 100 kg

DRUGS (30)
  1. HUMAN IMMUNOGLOBULIN G [Suspect]
     Active Substance: HUMAN IMMUNOGLOBULIN G
     Indication: Immune system disorder
     Dosage: 15 GRAM, 1/WEEK
     Dates: start: 20220719
  2. HUMAN IMMUNOGLOBULIN G [Suspect]
     Active Substance: HUMAN IMMUNOGLOBULIN G
     Indication: Hypergammaglobulinaemia
     Dosage: 15 GRAM, 1/WEEK
  3. HUMAN IMMUNOGLOBULIN G [Suspect]
     Active Substance: HUMAN IMMUNOGLOBULIN G
     Dosage: 15 GRAM, 1/WEEK
  4. HUMAN IMMUNOGLOBULIN G [Suspect]
     Active Substance: HUMAN IMMUNOGLOBULIN G
     Dosage: 15 GRAM, 1/WEEK
  5. CUVITRU [Suspect]
     Active Substance: HUMAN IMMUNOGLOBULIN G
     Indication: Immune system disorder
     Dosage: 12 GRAM, 1/WEEK
     Dates: start: 20220719
  6. CUVITRU [Suspect]
     Active Substance: HUMAN IMMUNOGLOBULIN G
     Indication: Hypergammaglobulinaemia
  7. DIPHENHYDRAMINE HYDROCHLORIDE [Concomitant]
     Active Substance: DIPHENHYDRAMINE HYDROCHLORIDE
  8. FLUTICASONE PROPIONATE [Concomitant]
     Active Substance: FLUTICASONE PROPIONATE
  9. NURTEC ODT [Concomitant]
     Active Substance: RIMEGEPANT SULFATE
  10. ONDANSETRON HYDROCHLORIDE [Concomitant]
     Active Substance: ONDANSETRON HYDROCHLORIDE
  11. ACETAMINOPHEN [Concomitant]
     Active Substance: ACETAMINOPHEN
  12. PRILOSEC [Concomitant]
     Active Substance: OMEPRAZOLE MAGNESIUM
  13. SINGULAIR [Concomitant]
     Active Substance: MONTELUKAST SODIUM
  14. LAMICTAL [Concomitant]
     Active Substance: LAMOTRIGINE
  15. DILANTIN [Concomitant]
     Active Substance: PHENYTOIN
  16. PROAIR HFA [Concomitant]
     Active Substance: ALBUTEROL SULFATE
  17. NORETHINDRONE ACETATE [Concomitant]
     Active Substance: NORETHINDRONE ACETATE
  18. DIAZEPAM [Concomitant]
     Active Substance: DIAZEPAM
  19. Lmx [Concomitant]
  20. TOPAMAX [Concomitant]
     Active Substance: TOPIRAMATE
  21. LASTACAFT [Concomitant]
     Active Substance: ALCAFTADINE
     Dosage: UNK UNK, QD
  22. DIPHENHYDRAMINE [Concomitant]
     Active Substance: DIPHENHYDRAMINE
  23. EPINEPHRINE [Concomitant]
     Active Substance: EPINEPHRINE
  24. BOTOX [Concomitant]
     Active Substance: ONABOTULINUMTOXINA
  25. VITAMIN D3 [Concomitant]
     Active Substance: CHOLECALCIFEROL
  26. FOLIC ACID [Concomitant]
     Active Substance: FOLIC ACID
  27. DRONABINOL [Concomitant]
     Active Substance: DRONABINOL
  28. QULIPTA [Concomitant]
     Active Substance: ATOGEPANT
  29. LIDOCAINE [Concomitant]
     Active Substance: LIDOCAINE
  30. MIDODRINE HYDROCHLORIDE [Concomitant]
     Active Substance: MIDODRINE HYDROCHLORIDE

REACTIONS (8)
  - Diverticulitis [Unknown]
  - Post procedural infection [Unknown]
  - Cystitis [Unknown]
  - Dermatitis contact [Unknown]
  - Illness [Unknown]
  - Infusion related reaction [Unknown]
  - Infusion site pain [Not Recovered/Not Resolved]
  - Headache [Unknown]

NARRATIVE: CASE EVENT DATE: 20230504
